FAERS Safety Report 14000544 (Version 1)
Quarter: 2017Q3

REPORT INFORMATION
  Report Type: Report from Study
  Country: IT (occurrence: IT)
  Receive Date: 20170922
  Receipt Date: 20170922
  Transmission Date: 20171128
  Serious: Yes (Death, Hospitalization)
  Sender: FDA-Public Use
  Company Number: IT-JNJFOC-20141212877

PATIENT
  Age: 65 Year
  Sex: Female

DRUGS (2)
  1. YONDELIS [Suspect]
     Active Substance: TRABECTEDIN
     Indication: ALVEOLAR SOFT PART SARCOMA
     Route: 042
     Dates: start: 20130517, end: 20130709
  2. YONDELIS [Suspect]
     Active Substance: TRABECTEDIN
     Indication: ALVEOLAR SOFT PART SARCOMA
     Route: 042
     Dates: start: 20130611

REACTIONS (10)
  - Asthenia [Fatal]
  - Oedema peripheral [Fatal]
  - Abdominal pain [Fatal]
  - Insomnia [Fatal]
  - Agitation [Fatal]
  - Nausea [Fatal]
  - Alanine aminotransferase increased [Fatal]
  - Hydronephrosis [Fatal]
  - Hypercreatinaemia [Fatal]
  - Hyperhidrosis [Fatal]

NARRATIVE: CASE EVENT DATE: 20130610
